FAERS Safety Report 24385692 (Version 1)
Quarter: 2024Q4

REPORT INFORMATION
  Report Type: Spontaneous
  Country: FR (occurrence: FR)
  Receive Date: 20241001
  Receipt Date: 20241001
  Transmission Date: 20250115
  Serious: Yes (Other)
  Sender: PFIZER
  Company Number: None

PATIENT
  Age: 53 Year
  Sex: Female
  Weight: 122 kg

DRUGS (4)
  1. CLINDAMYCIN [Suspect]
     Active Substance: CLINDAMYCIN
     Indication: Device related infection
     Dosage: 8 CAPSULES, 1X/DAY
     Route: 048
     Dates: start: 20240716, end: 20240829
  2. RIFAMPIN [Suspect]
     Active Substance: RIFAMPIN
     Indication: Device related infection
     Dosage: 4 CAPSULES, 1X/DAY
     Route: 048
     Dates: start: 20240716, end: 20240819
  3. AMITRIPTYLINE HYDROCHLORIDE [Concomitant]
     Active Substance: AMITRIPTYLINE HYDROCHLORIDE
     Dosage: UNK
  4. LORAZEPAM [Concomitant]
     Active Substance: LORAZEPAM
     Dosage: UNK

REACTIONS (3)
  - Headache [Recovered/Resolved]
  - Oropharyngeal discomfort [Recovered/Resolved]
  - Off label use [Unknown]

NARRATIVE: CASE EVENT DATE: 20240716
